FAERS Safety Report 12639040 (Version 1)
Quarter: 2016Q3

REPORT INFORMATION
  Report Type: Spontaneous
  Country: FR (occurrence: FR)
  Receive Date: 20160809
  Receipt Date: 20160809
  Transmission Date: 20161109
  Serious: Yes (Hospitalization)
  Sender: FDA-Public Use
  Company Number: FR-ASTRAZENECA-2016SE84175

PATIENT
  Age: 28092 Day
  Sex: Male

DRUGS (4)
  1. ZANIDIP [Concomitant]
     Active Substance: LERCANIDIPINE HYDROCHLORIDE
  2. NORSET [Concomitant]
     Active Substance: MIRTAZAPINE
     Dosage: 3.0DF UNKNOWN
  3. XEROQUEL [Suspect]
     Active Substance: QUETIAPINE FUMARATE
     Route: 048
     Dates: end: 20160611
  4. SERESTA [Concomitant]
     Active Substance: OXAZEPAM
     Dosage: 2.0DF UNKNOWN

REACTIONS (3)
  - Atrioventricular block [Unknown]
  - Ischaemic stroke [Recovered/Resolved]
  - Off label use [Recovered/Resolved]

NARRATIVE: CASE EVENT DATE: 20160611
